FAERS Safety Report 23854230 (Version 1)
Quarter: 2024Q2

REPORT INFORMATION
  Report Type: Spontaneous
  Country: NO (occurrence: NO)
  Receive Date: 20240514
  Receipt Date: 20240514
  Transmission Date: 20240716
  Serious: Yes (Hospitalization)
  Sender: FDA-Public Use
  Company Number: None

PATIENT
  Age: 28 Year
  Sex: Female

DRUGS (5)
  1. ROPIVACAINE [Suspect]
     Active Substance: ROPIVACAINE
     Indication: Procedural pain
     Dosage: 5 MG/ML MIXED WITH ADRENALINE: 50 MG ONCE, DIVIDED INTO TWO WOUND SITES IN ASSOSIATION WITH ADENOTON
     Dates: start: 20240417, end: 20240417
  2. OXYCODONE [Concomitant]
     Active Substance: OXYCODONE\OXYCODONE HYDROCHLORIDE
     Indication: Product used for unknown indication
     Dates: start: 20240417, end: 20240417
  3. ONDANSETRON [Concomitant]
     Active Substance: ONDANSETRON
     Indication: Product used for unknown indication
     Dates: start: 20240417, end: 20240417
  4. KETOROLAC [Concomitant]
     Active Substance: KETOROLAC TROMETHAMINE
     Indication: Product used for unknown indication
     Dates: start: 20240417, end: 20240417
  5. Dridol [Concomitant]
     Indication: Product used for unknown indication
     Dates: start: 20240417, end: 20240417

REACTIONS (4)
  - Anaphylactic reaction [Recovered/Resolved]
  - Tachycardia [Recovered/Resolved]
  - Erythema [Recovered/Resolved]
  - Urticaria [Recovered/Resolved]

NARRATIVE: CASE EVENT DATE: 20240417
